FAERS Safety Report 14798730 (Version 2)
Quarter: 2018Q3

REPORT INFORMATION
  Report Type: Spontaneous
  Country: FR (occurrence: FR)
  Receive Date: 20180424
  Receipt Date: 20180710
  Transmission Date: 20181010
  Serious: Yes (Hospitalization)
  Sender: FDA-Public Use
  Company Number: PHHY2018FR062730

PATIENT
  Age: 19 Year
  Sex: Male

DRUGS (2)
  1. OFLOXACIN. [Suspect]
     Active Substance: OFLOXACIN
     Indication: TYPHOID FEVER
     Dosage: 200 MG, BID
     Route: 048
  2. CEFTRIAXONE. [Suspect]
     Active Substance: CEFTRIAXONE
     Indication: TYPHOID FEVER
     Dosage: 2 G, BID
     Route: 042

REACTIONS (7)
  - Abnormal behaviour [Recovering/Resolving]
  - Pyrexia [Recovering/Resolving]
  - Toxic encephalopathy [Recovering/Resolving]
  - Extrapyramidal disorder [Recovering/Resolving]
  - Agitation [Recovering/Resolving]
  - Encephalitis [Recovered/Resolved]
  - Confusional state [Recovering/Resolving]
